FAERS Safety Report 5531820-8 (Version None)
Quarter: 2007Q4

REPORT INFORMATION
  Report Type: 
  Country: None (occurrence: None)
  Receive Date: 20071128
  Receipt Date: 20071128
  Transmission Date: 20080405
  Serious: Yes (Hospitalization)
  Sender: FDA-Public Use
  Company Number: None

PATIENT
  Age: 54 Year
  Sex: Male

DRUGS (2)
  1. LORAZEPAM [Suspect]
     Indication: AGITATION
     Dosage: 0.5MG  PRN  IV
     Route: 042
     Dates: start: 20070919, end: 20070920
  2. HALOPERIDOL [Suspect]
     Indication: AGITATION
     Dosage: 2MG  PRN  IV
     Route: 042
     Dates: start: 20070919, end: 20070920

REACTIONS (2)
  - CONFUSIONAL STATE [None]
  - SEDATION [None]
